FAERS Safety Report 16918039 (Version 1)
Quarter: 2019Q4

REPORT INFORMATION
  Report Type: Spontaneous
  Country: US (occurrence: US)
  Receive Date: 20191015
  Receipt Date: 20191015
  Transmission Date: 20200122
  Serious: Yes (Hospitalization, Other)
  Sender: FDA-Public Use
  Company Number: US-AUROBINDO-AUR-APL-2019-042687

PATIENT
  Age: 7 Day

DRUGS (1)
  1. BUTALBITAL+ACETAMINOPHEN+CAFFEINE 50MG/325MG/40MG [Suspect]
     Active Substance: ACETAMINOPHEN\BUTALBITAL\CAFFEINE
     Indication: HEADACHE
     Dosage: UNK EVERY 6 HOURS FOR 24 HOURS
     Route: 063

REACTIONS (8)
  - Poor feeding infant [Unknown]
  - Vomiting [Unknown]
  - Exposure via breast milk [Unknown]
  - Lethargy [Recovered/Resolved]
  - Depressed level of consciousness [Recovered/Resolved]
  - Hyporeflexia [Recovered/Resolved]
  - Toxicity to various agents [Unknown]
  - Somnolence [Recovered/Resolved]
